FAERS Safety Report 14222005 (Version 1)
Quarter: 2017Q4

REPORT INFORMATION
  Report Type: Spontaneous
  Country: US (occurrence: US)
  Receive Date: 20171124
  Receipt Date: 20171124
  Transmission Date: 20180321
  Serious: No
  Sender: FDA-Public Use
  Company Number: US-ALVOGEN-2017-ALVOGEN-093216

PATIENT
  Age: 71 Year
  Sex: Female
  Weight: 117.93 kg

DRUGS (18)
  1. LISINOPRIL. [Suspect]
     Active Substance: LISINOPRIL
     Indication: BLOOD PRESSURE ABNORMAL
     Route: 048
  2. ZOLOFT [Concomitant]
     Active Substance: SERTRALINE HYDROCHLORIDE
     Indication: DEPRESSION
     Route: 048
  3. ANASTROZOLE. [Suspect]
     Active Substance: ANASTROZOLE
     Indication: BREAST CANCER
     Route: 048
  4. METFORMIN [Concomitant]
     Active Substance: METFORMIN HYDROCHLORIDE
     Indication: DIABETES MELLITUS
     Route: 048
  5. DILTIAZEM. [Concomitant]
     Active Substance: DILTIAZEM
     Indication: HYPERTENSION
     Route: 048
  6. XYZAL [Concomitant]
     Active Substance: LEVOCETIRIZINE DIHYDROCHLORIDE
     Indication: HYPERSENSITIVITY
     Route: 048
  7. SYNTHROID [Concomitant]
     Active Substance: LEVOTHYROXINE SODIUM
     Indication: THYROIDITIS
     Route: 048
  8. MIRAPEX [Concomitant]
     Active Substance: PRAMIPEXOLE DIHYDROCHLORIDE
     Indication: RESTLESS LEGS SYNDROME
     Route: 048
  9. IRON [Concomitant]
     Active Substance: IRON
     Indication: PRODUCT USED FOR UNKNOWN INDICATION
     Route: 048
  10. MULTIVITAMIN [Concomitant]
     Active Substance: VITAMINS
     Indication: PRODUCT USED FOR UNKNOWN INDICATION
     Route: 048
  11. SYMBICORT [Suspect]
     Active Substance: BUDESONIDE\FORMOTEROL FUMARATE DIHYDRATE
     Indication: ASTHMA
     Dosage: 160/4.5 MCG
     Route: 055
  12. POTASSIUM [Concomitant]
     Active Substance: POTASSIUM
     Route: 048
  13. LASIX [Concomitant]
     Active Substance: FUROSEMIDE
     Route: 048
  14. LORAZEPAM. [Concomitant]
     Active Substance: LORAZEPAM
     Indication: ANXIETY
     Route: 048
  15. SIMVASTATIN. [Concomitant]
     Active Substance: SIMVASTATIN
     Indication: BLOOD CHOLESTEROL NORMAL
     Route: 048
  16. OMEPRAZOLE. [Suspect]
     Active Substance: OMEPRAZOLE
     Indication: ABDOMINAL DISCOMFORT
     Route: 048
  17. BACLOFEN. [Concomitant]
     Active Substance: BACLOFEN
     Indication: MUSCLE SPASMS
     Route: 048
  18. HYDROCODONE [Concomitant]
     Active Substance: HYDROCODONE
     Indication: PAIN
     Route: 048

REACTIONS (3)
  - Contusion [Recovering/Resolving]
  - Pigmentation disorder [Recovering/Resolving]
  - Fall [Recovering/Resolving]

NARRATIVE: CASE EVENT DATE: 201705
